FAERS Safety Report 23054770 (Version 2)
Quarter: 2023Q4

REPORT INFORMATION
  Report Type: Spontaneous
  Country: TR (occurrence: None)
  Receive Date: 20231011
  Receipt Date: 20231107
  Transmission Date: 20240110
  Serious: Yes (Hospitalization)
  Sender: FDA-Public Use
  Company Number: 2023A229962

PATIENT
  Age: 58 Year
  Sex: Female

DRUGS (5)
  1. ROSUVASTATIN [Suspect]
     Active Substance: ROSUVASTATIN
     Indication: Cardiovascular event prophylaxis
     Dosage: 10.0MG UNKNOWN
     Route: 048
  2. VERAPAMIL [Concomitant]
     Active Substance: VERAPAMIL HYDROCHLORIDE
     Indication: Essential hypertension
     Dosage: UNK
  3. TRANDOLAPRIL [Concomitant]
     Active Substance: TRANDOLAPRIL
     Indication: Essential hypertension
     Dosage: UNK
  4. HYDROXYCHLOROQUINE [Concomitant]
     Active Substance: HYDROXYCHLOROQUINE
     Indication: Rheumatoid arthritis
     Dosage: UNK
  5. PREDNISOLONE [Concomitant]
     Active Substance: PREDNISOLONE
     Indication: Rheumatoid arthritis
     Dosage: 5 MILLIGRAM

REACTIONS (2)
  - Myopathy [Recovered/Resolved]
  - Myalgia [Recovered/Resolved]
